FAERS Safety Report 5694145-6 (Version None)
Quarter: 2008Q2

REPORT INFORMATION
  Report Type: 
  Country: None (occurrence: None)
  Receive Date: 20080402
  Receipt Date: 20080326
  Transmission Date: 20081010
  Serious: Yes (Hospitalization)
  Sender: FDA-Public Use
  Company Number: 163-21880-07051583

PATIENT
  Age: 72 Year
  Sex: Female

DRUGS (2)
  1. REVLIMID [Suspect]
     Indication: MULTIPLE MYELOMA
     Dosage: 12.5 MG, 1 IN 2 D, ORAL, 25 MG, 1 IN 1 D, ORAL
     Route: 048
     Dates: start: 20061002, end: 20061018
  2. REVLIMID [Suspect]
     Indication: MULTIPLE MYELOMA
     Dosage: 12.5 MG, 1 IN 2 D, ORAL, 25 MG, 1 IN 1 D, ORAL
     Route: 048
     Dates: start: 20061101, end: 20061115

REACTIONS (2)
  - ANGIOEDEMA [None]
  - DERMATITIS EXFOLIATIVE [None]
